FAERS Safety Report 4416021-9 (Version None)
Quarter: 2004Q3

REPORT INFORMATION
  Report Type: 
  Country: None (occurrence: None)
  Receive Date: 20040805
  Receipt Date: 20040728
  Transmission Date: 20050211
  Serious: Yes (Hospitalization)
  Sender: FDA-Public Use
  Company Number: BR-BRISTOL-MYERS SQUIBB COMPANY-12654257

PATIENT
  Age: 97 Year
  Sex: Female

DRUGS (3)
  1. TEQUIN [Suspect]
     Indication: PNEUMONIA
     Route: 042
  2. OMEPRAZOLE [Concomitant]
  3. BROMOPRIDE [Concomitant]

REACTIONS (5)
  - ACIDOSIS [None]
  - HYPERGLYCAEMIA [None]
  - OLIGURIA [None]
  - RENAL IMPAIRMENT [None]
  - SOMNOLENCE [None]
